FAERS Safety Report 7157735-X (Version None)
Quarter: 2010Q4

REPORT INFORMATION
  Report Type: 
  Country: None (occurrence: None)
  Receive Date: 20101214
  Receipt Date: 20100201
  Transmission Date: 20110411
  Serious: No
  Sender: FDA-Public Use
  Company Number: US-ASTRAZENECA-2010SE04499

PATIENT
  Sex: Male
  Weight: 72.6 kg

DRUGS (3)
  1. CRESTOR [Suspect]
     Indication: BLOOD CHOLESTEROL
     Route: 048
     Dates: start: 20100125
  2. PLAVIX [Concomitant]
     Indication: BLOOD CHOLESTEROL
  3. PLAVIX [Concomitant]
     Indication: AORTIC DISORDER

REACTIONS (1)
  - ERECTILE DYSFUNCTION [None]
